FAERS Safety Report 18696248 (Version 2)
Quarter: 2022Q4

REPORT INFORMATION
  Report Type: Spontaneous
  Country: US (occurrence: US)
  Receive Date: 20210104
  Receipt Date: 20221206
  Transmission Date: 20230113
  Serious: Yes (Other)
  Sender: FDA-Public Use
  Company Number: US-JNJFOC-20210101466

PATIENT
  Age: 73 Year
  Sex: Male

DRUGS (1)
  1. ERLEADA [Suspect]
     Active Substance: APALUTAMIDE
     Indication: Product used for unknown indication
     Dosage: 60MG TABLET  4?TABLETS DAILY
     Route: 048
     Dates: start: 20201229

REACTIONS (2)
  - Neuropathy peripheral [Unknown]
  - Pollakiuria [Unknown]

NARRATIVE: CASE EVENT DATE: 20201201
